FAERS Safety Report 4958262-8 (Version None)
Quarter: 2006Q1

REPORT INFORMATION
  Report Type: 
  Country: None (occurrence: None)
  Receive Date: 20060330
  Receipt Date: 20060320
  Transmission Date: 20060701
  Serious: Yes (Other)
  Sender: FDA-Public Use
  Company Number: US-JNJFOC-20060106169

PATIENT
  Sex: Female
  Weight: 76.66 kg

DRUGS (10)
  1. REMICADE [Suspect]
     Dosage: INFUSION # 60; Q 4-6 WEEKS
     Route: 042
  2. REMICADE [Suspect]
     Dosage: 5 MG/KG EVERY 4-6 WEEKS
     Route: 042
  3. REMICADE [Suspect]
     Dosage: 5 MG/KG EVERY 4-6 WEEKS
     Route: 042
  4. REMICADE [Suspect]
     Dosage: 5 MG/KG EVERY 4-6 WEEKS
     Route: 042
  5. REMICADE [Suspect]
     Indication: CROHN'S DISEASE
     Dosage: 1ST INFUSION
     Route: 042
  6. B-12 [Concomitant]
     Indication: VITAMIN B12 DEFICIENCY
     Dosage: DOSE: 100 MCG
     Route: 030
  7. DYAZIDE [Concomitant]
     Route: 048
  8. DYAZIDE [Concomitant]
     Indication: FLUID RETENTION
     Dosage: DOSE: 3.75/25
     Route: 048
  9. VICODIN [Concomitant]
     Route: 048
  10. VICODIN [Concomitant]
     Indication: PAIN
     Dosage: 500/5 1 EVERY SIX HOURS PRN
     Route: 048

REACTIONS (7)
  - BARTHOLIN'S ABSCESS [None]
  - CELLULITIS [None]
  - DRUG INEFFECTIVE [None]
  - HEADACHE [None]
  - HYSTERECTOMY [None]
  - RESTLESS LEGS SYNDROME [None]
  - SINUSITIS [None]
